FAERS Safety Report 6751180-4 (Version None)
Quarter: 2010Q2

REPORT INFORMATION
  Report Type: 
  Country: None (occurrence: None)
  Receive Date: 20100602
  Receipt Date: 20100528
  Transmission Date: 20101027
  Serious: Yes (Hospitalization)
  Sender: FDA-Public Use
  Company Number: FR-BRISTOL-MYERS SQUIBB COMPANY-15127541

PATIENT
  Age: 38 Year
  Sex: Male

DRUGS (3)
  1. HYDREA [Suspect]
     Indication: SICKLE CELL ANAEMIA
     Route: 048
     Dates: start: 20060101, end: 20091213
  2. PRAXILENE [Concomitant]
     Dosage: TABS
  3. SPECIAFOLDINE [Concomitant]
     Dosage: TAB

REACTIONS (2)
  - SKIN ULCER [None]
  - VASCULAR OCCLUSION [None]
